FAERS Safety Report 7643745-2 (Version None)
Quarter: 2011Q3

REPORT INFORMATION
  Report Type: 
  Country: None (occurrence: None)
  Receive Date: 20110729
  Receipt Date: 20110722
  Transmission Date: 20111222
  Serious: Yes (Hospitalization)
  Sender: FDA-Public Use
  Company Number: DE-ABBOTT-11P-062-0841261-00

PATIENT
  Sex: Female

DRUGS (2)
  1. BETA BLOCKING AGENTS [Concomitant]
     Indication: PRODUCT USED FOR UNKNOWN INDICATION
  2. HUMIRA [Suspect]
     Indication: ANKYLOSING SPONDYLITIS
     Dosage: 40MG EOW PEN
     Dates: start: 20100719

REACTIONS (2)
  - CARDIAC DISORDER [None]
  - ILL-DEFINED DISORDER [None]
